FAERS Safety Report 15797093 (Version 1)
Quarter: 2019Q1

REPORT INFORMATION
  Report Type: Spontaneous
  Country: GB (occurrence: GB)
  Receive Date: 20190108
  Receipt Date: 20190108
  Transmission Date: 20190417
  Serious: Yes (Life-Threatening, Other)
  Sender: FDA-Public Use
  Company Number: GB-TEVA-2018-GB-966698

PATIENT
  Age: 31 Year
  Sex: Female
  Weight: 58.29 kg

DRUGS (16)
  1. ADCAL-D3 [Concomitant]
     Active Substance: CALCIUM CARBONATE\CHOLECALCIFEROL
     Indication: BONE DISORDER
     Dosage: 2 DOSAGE FORMS DAILY;
     Route: 065
     Dates: start: 20180529, end: 20180705
  2. EVACAL D3 CHEWABLE [Concomitant]
     Indication: BONE DISORDER
     Dosage: 2 DOSAGE FORMS DAILY; 1500MG/400UNITS. THIS IS THE SAME AS ADCAL-D3
     Route: 065
     Dates: start: 20180713
  3. PREDNISOLONE. [Concomitant]
     Active Substance: PREDNISOLONE
     Dosage: 30 MILLIGRAM DAILY; IN THE MORNING AT BREAKFAST.
     Route: 065
     Dates: start: 20180508, end: 20180511
  4. FLUCONAZOLE. [Concomitant]
     Active Substance: FLUCONAZOLE
     Indication: FUNGAL INFECTION
     Dosage: 50 MILLIGRAM DAILY;
     Route: 065
     Dates: start: 20180529
  5. HYDROXYCHLOROQUINE [Concomitant]
     Active Substance: HYDROXYCHLOROQUINE
     Dosage: 200 MILLIGRAM DAILY; IN THE MORNING.
     Route: 065
     Dates: start: 20180613, end: 2018
  6. RANITIDINE. [Concomitant]
     Active Substance: RANITIDINE
     Indication: DYSPEPSIA
     Dosage: TWICE A DAY
     Route: 065
     Dates: start: 20180529
  7. MYCOPHENOLATE MOFETIL. [Suspect]
     Active Substance: MYCOPHENOLATE MOFETIL
     Indication: SYSTEMIC LUPUS ERYTHEMATOSUS
     Route: 048
  8. FOLIC ACID. [Concomitant]
     Active Substance: FOLIC ACID
     Indication: SYSTEMIC LUPUS ERYTHEMATOSUS
     Dosage: 5 MILLIGRAM DAILY;
     Route: 065
     Dates: start: 20180625
  9. AMLODIPINE [Concomitant]
     Active Substance: AMLODIPINE BESYLATE
     Indication: HYPERTENSION
     Dosage: 10 MILLIGRAM DAILY;
     Route: 065
     Dates: start: 20180530
  10. PREDNISOLONE. [Concomitant]
     Active Substance: PREDNISOLONE
     Dosage: 20 MILLIGRAM DAILY; IN THE MORNING AT BREAKFAST.
     Route: 065
     Dates: start: 20180724
  11. PNEUMOCOCCAL POLYSACCHARIDE VACCINE (23 VALENT) [Concomitant]
     Dosage: IMMEDIATELY.
     Route: 065
     Dates: start: 20180526, end: 20180526
  12. MYCOPHENOLATE MOFETIL. [Suspect]
     Active Substance: MYCOPHENOLATE MOFETIL
     Dosage: 1000 MILLIGRAM DAILY;
     Route: 048
     Dates: start: 2007, end: 2018
  13. PREDNISOLONE. [Concomitant]
     Active Substance: PREDNISOLONE
     Dosage: 25 MILLIGRAM DAILY; IN THE MORNING, AFTER BREAKFAST.
     Route: 065
     Dates: start: 20180529, end: 20180720
  14. COTRIMOXAZOLE [Concomitant]
     Active Substance: SULFAMETHOXAZOLE\TRIMETHOPRIM
     Dosage: 480 MILLIGRAM DAILY; 80MG/400MG
     Route: 065
     Dates: start: 20180530
  15. RITUXIMAB. [Concomitant]
     Active Substance: RITUXIMAB
     Indication: LUPUS NEPHRITIS
     Dates: start: 2018
  16. REVAXIS [Concomitant]
     Active Substance: DIPHTHERIA AND TETANUS TOXOIDS AND POLIOVIRUS VACCINE ANTIGENS
     Dosage: IMMEDIATELY.
     Route: 065
     Dates: start: 20180526, end: 20180526

REACTIONS (2)
  - Abdominal discomfort [Unknown]
  - Neutropenia [Recovered/Resolved]

NARRATIVE: CASE EVENT DATE: 20180731
